FAERS Safety Report 5301500-2 (Version None)
Quarter: 2007Q2

REPORT INFORMATION
  Report Type: 
  Country: None (occurrence: None)
  Receive Date: 20070412
  Receipt Date: 20070328
  Transmission Date: 20071010
  Serious: Yes (Death, Hospitalization)
  Sender: FDA-Public Use
  Company Number: 07-000298

PATIENT
  Age: 46 Year
  Sex: Female
  Weight: 86.6 kg

DRUGS (6)
  1. LOESTRIN 21 1/20 [Suspect]
     Indication: METRORRHAGIA
     Dosage: 20/1000 UG, QD, ORAL
     Route: 048
     Dates: start: 20060613, end: 20060705
  2. LOESTRIN 21 1/20 [Suspect]
     Indication: UTERINE LEIOMYOMA
     Dosage: 20/1000 UG, QD, ORAL
     Route: 048
     Dates: start: 20060613, end: 20060705
  3. LOESTRIN 21 1/20 [Suspect]
     Indication: METRORRHAGIA
     Dosage: 20/1000 UG, QD, ORAL
     Route: 048
     Dates: start: 20060801, end: 20070101
  4. LOESTRIN 21 1/20 [Suspect]
     Indication: UTERINE LEIOMYOMA
     Dosage: 20/1000 UG, QD, ORAL
     Route: 048
     Dates: start: 20060801, end: 20070101
  5. XANAX [Concomitant]
  6. AMBIEN [Concomitant]

REACTIONS (5)
  - ABDOMINAL DISCOMFORT [None]
  - ABDOMINAL PAIN [None]
  - DIARRHOEA [None]
  - ENDOMETRIAL DISORDER [None]
  - PULMONARY EMBOLISM [None]
